FAERS Safety Report 24205984 (Version 1)
Quarter: 2024Q3

REPORT INFORMATION
  Report Type: Spontaneous
  Country: US (occurrence: None)
  Receive Date: 20240812
  Receipt Date: 20240812
  Transmission Date: 20241017
  Serious: Yes (Other)
  Sender: Public
  Company Number: None

PATIENT
  Age: 53 Year
  Sex: Female
  Weight: 51.75 kg

DRUGS (6)
  1. EMGALITY [Suspect]
     Active Substance: GALCANEZUMAB-GNLM
     Indication: Migraine
     Dosage: OTHER QUANTITY : 2 INJECTION(S);?OTHER FREQUENCY : MONTHLY;?
     Route: 058
     Dates: start: 20240729, end: 20240808
  2. ZOLPIDEM [Concomitant]
     Active Substance: ZOLPIDEM TARTRATE
  3. LINZESS [Concomitant]
     Active Substance: LINACLOTIDE
  4. NORTRIPTYLINE [Concomitant]
     Active Substance: NORTRIPTYLINE
  5. toradol/ketoralac [Concomitant]
  6. clopidogrel/plavix [Concomitant]

REACTIONS (5)
  - Chest pain [None]
  - Burning sensation [None]
  - Decreased appetite [None]
  - Nausea [None]
  - Headache [None]

NARRATIVE: CASE EVENT DATE: 20240807
